FAERS Safety Report 5281780-2 (Version None)
Quarter: 2007Q1

REPORT INFORMATION
  Report Type: 
  Country: None (occurrence: None)
  Receive Date: 20070330
  Receipt Date: 20070326
  Transmission Date: 20070707
  Serious: Yes (Hospitalization)
  Sender: FDA-Public Use
  Company Number: ES-GLAXOSMITHKLINE-B0464246A

PATIENT
  Age: 35 Year
  Sex: Female

DRUGS (3)
  1. TRIZIVIR [Suspect]
     Indication: HIV INFECTION
     Route: 048
     Dates: start: 20061001, end: 20061216
  2. INVIRASE [Suspect]
     Indication: HIV INFECTION
     Dosage: 500MG TWICE PER DAY
     Route: 048
     Dates: start: 20061001, end: 20061216
  3. NORVIR [Suspect]
     Indication: HIV INFECTION
     Dosage: 100MG TWICE PER DAY
     Route: 048
     Dates: start: 20061001, end: 20061216

REACTIONS (2)
  - APLASIA PURE RED CELL [None]
  - PALLOR [None]
